FAERS Safety Report 7817995-6 (Version None)
Quarter: 2011Q4

REPORT INFORMATION
  Report Type: 
  Country: None (occurrence: None)
  Receive Date: 20111017
  Receipt Date: 20111006
  Transmission Date: 20120403
  Serious: Yes (Hospitalization)
  Sender: FDA-Public Use
  Company Number: BR-MEDIMMUNE-MEDI-0013496

PATIENT
  Sex: Male
  Weight: 5.2 kg

DRUGS (8)
  1. SYNAGIS [Suspect]
     Route: 030
     Dates: start: 20110826, end: 20110826
  2. RANITIDINE [Concomitant]
     Route: 048
     Dates: start: 20110113
  3. SIMILAC [Concomitant]
     Route: 048
     Dates: start: 20110405
  4. DOMPERIDONE [Concomitant]
     Route: 048
     Dates: start: 20110113
  5. PROTOVIT [Concomitant]
     Indication: VITAMIN SUPPLEMENTATION
     Route: 048
     Dates: start: 20110113
  6. FENOTEROL W/IPRATROPIUM [Concomitant]
     Dates: start: 20110113
  7. FERROUS SULFATE TAB [Concomitant]
     Route: 048
     Dates: start: 20110113
  8. SYNAGIS [Suspect]
     Route: 030
     Dates: start: 20110609, end: 20110609

REACTIONS (2)
  - CYANOSIS [None]
  - RESPIRATORY ARREST [None]
